FAERS Safety Report 25422309 (Version 1)
Quarter: 2025Q2

REPORT INFORMATION
  Report Type: Spontaneous
  Country: FR (occurrence: FR)
  Receive Date: 20250611
  Receipt Date: 20250611
  Transmission Date: 20250716
  Serious: Yes (Other)
  Sender: SANDOZ
  Company Number: None

PATIENT
  Age: 63 Year
  Sex: Female

DRUGS (2)
  1. BROMAZEPAM [Suspect]
     Active Substance: BROMAZEPAM
     Indication: Anxiety
     Dosage: 1.5 UNK, TID,MINIMUM 1.5MG MORNING, NOON AND EVENING
     Route: 048
     Dates: start: 2017
  2. ZOLPIDEM [Suspect]
     Active Substance: ZOLPIDEM TARTRATE
     Indication: Somnolence
     Route: 048
     Dates: start: 2017

REACTIONS (5)
  - Drug use disorder [Not Recovered/Not Resolved]
  - Withdrawal syndrome [Unknown]
  - Therapeutic product effect decreased [Unknown]
  - Incorrect product administration duration [Unknown]
  - Pharmaceutical nomadism [Unknown]
